FAERS Safety Report 21049949 (Version 2)
Quarter: 2022Q3

REPORT INFORMATION
  Report Type: Spontaneous
  Country: JP (occurrence: JP)
  Receive Date: 20220706
  Receipt Date: 20220718
  Transmission Date: 20221027
  Serious: Yes (Other)
  Sender: FDA-Public Use
  Company Number: JP-TEVA-2022-JP-2052379

PATIENT
  Age: 11 Day
  Sex: Female

DRUGS (11)
  1. HYDROCORTISONE [Suspect]
     Active Substance: HYDROCORTISONE
     Indication: 21-hydroxylase deficiency
     Dosage: 100 MG/M2 DAILY;
     Route: 041
  2. HYDROCORTISONE [Suspect]
     Active Substance: HYDROCORTISONE
     Dosage: 75 MG/M2 DAILY;
     Route: 041
  3. SODIUM CHLORIDE [Suspect]
     Active Substance: SODIUM CHLORIDE
     Indication: 21-hydroxylase deficiency
     Dosage: 1 GRAM DAILY;
     Route: 048
  4. SODIUM POLYSTYRENE SULFONATE [Suspect]
     Active Substance: SODIUM POLYSTYRENE SULFONATE
     Indication: Hyperkalaemia
     Route: 048
  5. FLUDROCORTISONE [Suspect]
     Active Substance: FLUDROCORTISONE
     Indication: 21-hydroxylase deficiency
     Dosage: .2 MILLIGRAM DAILY;
     Route: 048
  6. FLUDROCORTISONE [Suspect]
     Active Substance: FLUDROCORTISONE
     Route: 048
  7. FLUDROCORTISONE [Suspect]
     Active Substance: FLUDROCORTISONE
     Route: 048
  8. HYDROCORTISONE [Suspect]
     Active Substance: HYDROCORTISONE
     Indication: 21-hydroxylase deficiency
     Dosage: 60 MG/M2 DAILY;
     Route: 048
  9. HYDROCORTISONE [Suspect]
     Active Substance: HYDROCORTISONE
     Dosage: 75 MG/M2 DAILY;
     Route: 048
  10. HYDROCORTISONE [Suspect]
     Active Substance: HYDROCORTISONE
     Dosage: 45 MG/M2 DAILY;
     Route: 048
  11. SALINE [Concomitant]
     Active Substance: SODIUM CHLORIDE
     Indication: 21-hydroxylase deficiency
     Route: 041

REACTIONS (2)
  - Adrenocortical insufficiency acute [Recovered/Resolved]
  - Drug ineffective [Unknown]
